FAERS Safety Report 9024823 (Version 5)
Quarter: 2013Q3

REPORT INFORMATION
  Report Type: Spontaneous
  Country: US (occurrence: US)
  Receive Date: 20130121
  Receipt Date: 20130823
  Transmission Date: 20140515
  Serious: No
  Sender: FDA-Public Use
  Company Number: US-BIOGENIDEC-2013BI003335

PATIENT
  Age: 60 Year
  Sex: Female

DRUGS (1)
  1. TYSABRI [Suspect]
     Indication: MULTIPLE SCLEROSIS
     Route: 042
     Dates: start: 20121205

REACTIONS (47)
  - Diplopia [Recovered/Resolved]
  - Balance disorder [Not Recovered/Not Resolved]
  - Fall [Recovered/Resolved]
  - Multiple fractures [Unknown]
  - Amnesia [Not Recovered/Not Resolved]
  - Musculoskeletal stiffness [Recovered/Resolved]
  - Neck pain [Unknown]
  - Eye pain [Unknown]
  - Muscle tightness [Unknown]
  - Muscle spasms [Unknown]
  - Central nervous system lesion [Not Recovered/Not Resolved]
  - Tremor [Unknown]
  - Spinal disorder [Unknown]
  - Anxiety [Unknown]
  - Migraine [Unknown]
  - Musculoskeletal discomfort [Recovered/Resolved]
  - Ear pain [Recovered/Resolved]
  - Dysphagia [Recovered/Resolved]
  - Diarrhoea [Not Recovered/Not Resolved]
  - Mobility decreased [Not Recovered/Not Resolved]
  - Speech disorder [Recovered/Resolved]
  - Visual acuity reduced [Unknown]
  - Memory impairment [Unknown]
  - Insomnia [Unknown]
  - Hypersomnia [Unknown]
  - Optic neuritis [Unknown]
  - Inflammation [Unknown]
  - Musculoskeletal disorder [Unknown]
  - Nerve injury [Unknown]
  - Dysarthria [Unknown]
  - Oesophageal stenosis [Not Recovered/Not Resolved]
  - Oesophageal spasm [Unknown]
  - Gastritis [Unknown]
  - Retching [Unknown]
  - Catheter site haemorrhage [Unknown]
  - Fluid intake reduced [Unknown]
  - Cognitive disorder [Not Recovered/Not Resolved]
  - Disturbance in attention [Not Recovered/Not Resolved]
  - Osteoporosis [Not Recovered/Not Resolved]
  - Abasia [Recovered/Resolved]
  - Hypoaesthesia [Not Recovered/Not Resolved]
  - Coordination abnormal [Not Recovered/Not Resolved]
  - Multiple sclerosis relapse [Not Recovered/Not Resolved]
  - Vomiting [Recovered/Resolved]
  - Fatigue [Not Recovered/Not Resolved]
  - Pneumonia [Not Recovered/Not Resolved]
  - Multiple sclerosis [Not Recovered/Not Resolved]
